FAERS Safety Report 17680439 (Version 5)
Quarter: 2020Q4

REPORT INFORMATION
  Report Type: Report from Study
  Country: US (occurrence: US)
  Receive Date: 20200417
  Receipt Date: 20201211
  Transmission Date: 20210113
  Serious: Yes (Other)
  Sender: FDA-Public Use
  Company Number: NVSC2020US103755

PATIENT
  Age: 45 Year
  Sex: Female

DRUGS (2)
  1. GILENYA [Suspect]
     Active Substance: FINGOLIMOD HYDROCHLORIDE
     Indication: RELAPSING-REMITTING MULTIPLE SCLEROSIS
  2. GILENYA [Suspect]
     Active Substance: FINGOLIMOD HYDROCHLORIDE
     Indication: MULTIPLE SCLEROSIS
     Dosage: 0.5 MG, QD
     Route: 048
     Dates: start: 20200415

REACTIONS (15)
  - Fear [Unknown]
  - Hunger [Unknown]
  - Gastrooesophageal reflux disease [Unknown]
  - Band sensation [Unknown]
  - Scar [Unknown]
  - Multiple sclerosis relapse [Unknown]
  - Diabetes mellitus [Unknown]
  - Muscle spasms [Unknown]
  - Nervousness [Unknown]
  - Stress [Unknown]
  - Depressed mood [Unknown]
  - Memory impairment [Unknown]
  - Choking [Unknown]
  - Retching [Unknown]
  - Muscle twitching [Unknown]

NARRATIVE: CASE EVENT DATE: 20200415
